FAERS Safety Report 22354143 (Version 1)
Quarter: 2023Q2

REPORT INFORMATION
  Report Type: Spontaneous
  Country: US (occurrence: US)
  Receive Date: 20230523
  Receipt Date: 20230523
  Transmission Date: 20230721
  Serious: No
  Sender: FDA-Public Use
  Company Number: US-SA-SAC20230519000700

PATIENT
  Age: 55 Year
  Sex: Female
  Weight: 101 kg

DRUGS (7)
  1. KEVZARA [Suspect]
     Active Substance: SARILUMAB
     Indication: Rheumatoid arthritis
     Dosage: 150 MG, QOW
     Route: 058
     Dates: start: 20230412
  2. OZEMPIC [Concomitant]
     Active Substance: SEMAGLUTIDE
  3. PRAVASTATIN SODIUM [Concomitant]
     Active Substance: PRAVASTATIN SODIUM
  4. LEXAPRO [Concomitant]
     Active Substance: ESCITALOPRAM OXALATE
  5. LEVOTHYROXINE [Concomitant]
     Active Substance: LEVOTHYROXINE
  6. LOSARTAN POTASSIUM [Concomitant]
     Active Substance: LOSARTAN POTASSIUM
  7. METHOTREXATE [Concomitant]
     Active Substance: METHOTREXATE

REACTIONS (3)
  - Rhinorrhoea [Not Recovered/Not Resolved]
  - Bronchitis [Not Recovered/Not Resolved]
  - Nasopharyngitis [Not Recovered/Not Resolved]

NARRATIVE: CASE EVENT DATE: 20230101
